FAERS Safety Report 17648724 (Version 3)
Quarter: 2020Q2

REPORT INFORMATION
  Report Type: Spontaneous
  Country: US (occurrence: US)
  Receive Date: 20200408
  Receipt Date: 20200604
  Transmission Date: 20200713
  Serious: Yes (Other)
  Sender: FDA-Public Use
  Company Number: US-GLAXOSMITHKLINE-US2020AMR059789

PATIENT
  Age: 76 Year
  Sex: Female

DRUGS (3)
  1. ZEJULA [Suspect]
     Active Substance: NIRAPARIB
     Dosage: 100 MG, QD
  2. ZEJULA [Suspect]
     Active Substance: NIRAPARIB
     Indication: OVARIAN CANCER
     Dosage: 100 MG, QD
     Route: 048
     Dates: start: 20200302
  3. ZEJULA [Suspect]
     Active Substance: NIRAPARIB
     Dosage: 100 MG, QD
     Route: 048
     Dates: start: 20200304

REACTIONS (15)
  - Insomnia [Recovering/Resolving]
  - Renal impairment [Unknown]
  - Dental restoration failure [Unknown]
  - Abdominal pain upper [Unknown]
  - Peripheral swelling [Unknown]
  - Condition aggravated [Unknown]
  - Underdose [Unknown]
  - Somnolence [Unknown]
  - Cataract [Unknown]
  - Rash erythematous [Unknown]
  - Periorbital swelling [Unknown]
  - Fatigue [Unknown]
  - Diarrhoea [Unknown]
  - Hypotension [Unknown]
  - Malaise [Unknown]

NARRATIVE: CASE EVENT DATE: 20200320
